FAERS Safety Report 24996066 (Version 1)
Quarter: 2025Q1

REPORT INFORMATION
  Report Type: Spontaneous
  Country: US (occurrence: US)
  Receive Date: 20250221
  Receipt Date: 20250221
  Transmission Date: 20250409
  Serious: No
  Sender: CATALYST PHARMA
  Company Number: US-CATALYST PHARMACEUTICALS-US-CATA-24-01654

PATIENT
  Sex: Male
  Weight: 46.259 kg

DRUGS (7)
  1. AGAMREE [Suspect]
     Active Substance: VAMOROLONE
     Indication: Duchenne muscular dystrophy
     Dosage: 6.8 ML ONCE A DAY
     Route: 048
     Dates: start: 20240508
  2. LOSARTAN POTASSIUM [Concomitant]
     Active Substance: LOSARTAN POTASSIUM
     Indication: Cardiovascular event prophylaxis
     Dosage: 25 MG ONCE A DAY
     Route: 065
  3. ALBUTEROL SULFATE [Concomitant]
     Active Substance: ALBUTEROL SULFATE
     Indication: Hypersensitivity
     Route: 055
  4. CARVEDILOL [Concomitant]
     Active Substance: CARVEDILOL
     Indication: Cardiovascular event prophylaxis
     Dosage: 3.125 MG TWICE A DAY
     Route: 065
  5. EPLERENONE [Concomitant]
     Active Substance: EPLERENONE
     Indication: Cardiovascular event prophylaxis
     Dosage: 25 MG ONCE A DAY
     Route: 065
  6. MIRALAX [Concomitant]
     Active Substance: POLYETHYLENE GLYCOL 3350
     Indication: Constipation
     Dosage: ONE CAPSULE ONCE A DAY
     Route: 065
  7. SENEXON [Concomitant]
     Indication: Constipation
     Dosage: 8.6-50 MG TABLET AT BEDTIME
     Route: 065

REACTIONS (1)
  - Increased appetite [Not Recovered/Not Resolved]

NARRATIVE: CASE EVENT DATE: 20240101
